FAERS Safety Report 14691157 (Version 1)
Quarter: 2018Q1

REPORT INFORMATION
  Report Type: Spontaneous
  Country: US (occurrence: US)
  Receive Date: 20180328
  Receipt Date: 20180328
  Transmission Date: 20180509
  Serious: Yes (Other)
  Sender: FDA-Public Use
  Company Number: US-INDIVIOR LIMITED-INDV-102711-2017

PATIENT
  Age: 31 Year
  Sex: Female

DRUGS (3)
  1. SUBUTEX [Suspect]
     Active Substance: BUPRENORPHINE HYDROCHLORIDE
     Indication: BIPOLAR DISORDER
     Dosage: 2MG DAILY (ONE TABLET EVERY OTHER DAY AND HALF TABLET EVERY OTHER DAY), UNK
     Route: 060
     Dates: start: 2017
  2. NICOTINE. [Concomitant]
     Active Substance: NICOTINE
     Indication: EX-TOBACCO USER
     Dosage: 9 CIGARETTE DAILY
     Route: 065
     Dates: end: 20170301
  3. SUBUTEX [Suspect]
     Active Substance: BUPRENORPHINE HYDROCHLORIDE
     Indication: DRUG DEPENDENCE
     Dosage: 1 TO 2MG DAILY (ONE TABLET EVERY OTHER DAY AND HALF TABLET EVERY OTHER DAY), UNK
     Route: 060
     Dates: start: 2017, end: 2017

REACTIONS (5)
  - Ectopic pregnancy [Recovered/Resolved]
  - Maternal exposure during pregnancy [Recovered/Resolved]
  - Wrong technique in product usage process [Not Recovered/Not Resolved]
  - Emotional distress [Unknown]
  - Insomnia [Unknown]

NARRATIVE: CASE EVENT DATE: 2017
